FAERS Safety Report 18208249 (Version 2)
Quarter: 2020Q4

REPORT INFORMATION
  Report Type: Spontaneous
  Country: BR (occurrence: BR)
  Receive Date: 20200828
  Receipt Date: 20201001
  Transmission Date: 20210113
  Serious: Yes (Other)
  Sender: FDA-Public Use
  Company Number: BR-PFIZER INC-2020329769

PATIENT
  Sex: Female

DRUGS (1)
  1. XALATAN [Suspect]
     Active Substance: LATANOPROST
     Dosage: UNK

REACTIONS (4)
  - Drug ineffective [Unknown]
  - Dark circles under eyes [Unknown]
  - Cataract [Unknown]
  - Photophobia [Unknown]

NARRATIVE: CASE EVENT DATE: 2018
